FAERS Safety Report 5869441-X (Version None)
Quarter: 2008Q3

REPORT INFORMATION
  Report Type: 
  Country: None (occurrence: None)
  Receive Date: 20080829
  Receipt Date: 20080826
  Transmission Date: 20090109
  Serious: Yes (Hospitalization, Other)
  Sender: FDA-Public Use
  Company Number: CERZ-1000350

PATIENT
  Age: 69 Year
  Sex: Male

DRUGS (1)
  1. CEREZYME [Suspect]
     Indication: GAUCHER'S DISEASE
     Dosage: 5200 U, Q2W, INTRAVENOUS
     Route: 042
     Dates: start: 20071106

REACTIONS (9)
  - ABDOMINAL PAIN [None]
  - DIARRHOEA [None]
  - DIPLOPIA [None]
  - HYPOTENSION [None]
  - INFUSION RELATED REACTION [None]
  - MALIGNANT NEOPLASM OF AMPULLA OF VATER [None]
  - PARAESTHESIA ORAL [None]
  - PRURITUS [None]
  - URTICARIA [None]
